FAERS Safety Report 17467525 (Version 1)
Quarter: 2020Q1

REPORT INFORMATION
  Report Type: Spontaneous
  Country: US (occurrence: US)
  Receive Date: 20200226
  Receipt Date: 20200226
  Transmission Date: 20200409
  Serious: Yes (Hospitalization)
  Sender: FDA-Public Use
  Company Number: None

PATIENT
  Age: 82 Year
  Sex: Male

DRUGS (17)
  1. GABAPENTIN CAP 100 MG [Concomitant]
     Active Substance: GABAPENTIN
  2. TRAMADOL HCL TAB 50 MG [Concomitant]
  3. AMLODIPINE TAB 10 MG [Concomitant]
  4. FUROSEMIDE TAB 20 MG [Concomitant]
  5. CANDESARTAN TAB 8 MG [Concomitant]
  6. CLOPIDOGREL TAB 75 MG [Concomitant]
  7. DIAZEPAM TAB 5 MG [Concomitant]
  8. JANUVIA TAB 50 MG [Concomitant]
  9. BYSTOLIC TAB 20 MG [Concomitant]
  10. ASMANEX 120 AER 220 MCG [Concomitant]
  11. METFORMIN TAB 1000 MG [Concomitant]
  12. SILDENAFIL. [Suspect]
     Active Substance: SILDENAFIL
     Indication: PULMONARY HYPERTENSION
     Route: 048
     Dates: start: 20191204
  13. ATORVASTATIN TAB 20 MG [Concomitant]
  14. GLIMEPIRIDE TAB 4 MG [Concomitant]
  15. HYDRALAZINE TAB 25 MG [Concomitant]
  16. REVATIO [Concomitant]
     Active Substance: SILDENAFIL CITRATE
  17. SERTRALINE TAB 100 MG [Concomitant]

REACTIONS (4)
  - Cerebral haemorrhage [None]
  - Craniocerebral injury [None]
  - Fall [None]
  - Therapy cessation [None]

NARRATIVE: CASE EVENT DATE: 20200208
